FAERS Safety Report 23026759 (Version 2)
Quarter: 2023Q4

REPORT INFORMATION
  Report Type: Report from Study
  Country: CA (occurrence: CA)
  Receive Date: 20231004
  Receipt Date: 20231006
  Transmission Date: 20240109
  Serious: Yes (Hospitalization)
  Sender: FDA-Public Use
  Company Number: CA-MYLANLABS-2023M1104449

PATIENT
  Age: 73 Year
  Weight: 90.2 kg

DRUGS (1)
  1. OGIVRI [Suspect]
     Active Substance: TRASTUZUMAB-DKST
     Indication: Endometrial cancer stage IV
     Dosage: UNK
     Route: 042
     Dates: start: 20230628

REACTIONS (1)
  - Hospitalisation [Recovered/Resolved]

NARRATIVE: CASE EVENT DATE: 20230921
